FAERS Safety Report 10456250 (Version 1)
Quarter: 2014Q3

REPORT INFORMATION
  Report Type: Spontaneous
  Country: GB (occurrence: GB)
  Receive Date: 20140916
  Receipt Date: 20140916
  Transmission Date: 20150326
  Serious: Yes (Other)
  Sender: FDA-Public Use
  Company Number: GB-RANBAXY-2014RR-85485

PATIENT
  Age: 80 Year
  Sex: Female
  Weight: 46 kg

DRUGS (2)
  1. SIMVASTATIN. [Concomitant]
     Active Substance: SIMVASTATIN
     Indication: PRODUCT USED FOR UNKNOWN INDICATION
     Route: 065
  2. ATORVASTATIN [Suspect]
     Active Substance: ATORVASTATIN
     Indication: HYPERLIPIDAEMIA
     Dosage: 20 MG, UNK
     Route: 048
     Dates: start: 20140808, end: 20140821

REACTIONS (4)
  - Oral pain [Recovering/Resolving]
  - Stomatitis [Recovering/Resolving]
  - Oral mucosal erythema [Recovering/Resolving]
  - Aphthous stomatitis [Recovering/Resolving]

NARRATIVE: CASE EVENT DATE: 20140815
